FAERS Safety Report 16433714 (Version 1)
Quarter: 2019Q2

REPORT INFORMATION
  Report Type: Spontaneous
  Country: US (occurrence: US)
  Receive Date: 20190614
  Receipt Date: 20190614
  Transmission Date: 20190711
  Serious: No
  Sender: FDA-Public Use
  Company Number: US-MERZ NORTH AMERICA, INC.-19MRZ-00253

PATIENT
  Age: 46 Year
  Sex: Female

DRUGS (5)
  1. DESVENLAFAXINE SUCCINATE. [Concomitant]
     Active Substance: DESVENLAFAXINE SUCCINATE
     Indication: PRODUCT USED FOR UNKNOWN INDICATION
     Dosage: UNKNOWN
  2. DIAZEPAM. [Concomitant]
     Active Substance: DIAZEPAM
     Indication: PRODUCT USED FOR UNKNOWN INDICATION
     Dosage: UNKNOWN
  3. XEOMIN [Suspect]
     Active Substance: INCOBOTULINUMTOXINA
     Dosage: 40 UNITS/CC, 0.2 CC, 8 UNITS
     Route: 058
     Dates: start: 20190506, end: 20190506
  4. DEXAMFETAMINE SULFATE/AMFETAMINE SULFATE/AMFETAMINE ASPARTATE/DEXAMFETAMINE SACCHARATE [Concomitant]
     Indication: PRODUCT USED FOR UNKNOWN INDICATION
     Dosage: UNKNOWN
  5. XEOMIN [Suspect]
     Active Substance: INCOBOTULINUMTOXINA
     Indication: SKIN COSMETIC PROCEDURE
     Dosage: 40 UNITS/CC, 0.7 CC, 28 UNITS
     Route: 058
     Dates: start: 20190426, end: 20190426

REACTIONS (1)
  - Drug ineffective [Recovered/Resolved]

NARRATIVE: CASE EVENT DATE: 201904
